FAERS Safety Report 8790594 (Version 1)
Quarter: 2012Q4

REPORT INFORMATION
  Report Type: Spontaneous
  Country: US (occurrence: None)
  Receive Date: 20120912
  Receipt Date: 20120912
  Transmission Date: 20130627
  Serious: Yes (Hospitalization)
  Sender: FDA-Public Use
  Company Number: None

PATIENT

DRUGS (2)
  1. TELAPREVIR [Suspect]
     Indication: HEPATITIS C
     Route: 048
     Dates: start: 20120309, end: 20120608
  2. PEGINTERFERON [Suspect]
     Dosage: QWEEK
     Route: 058
     Dates: start: 20120305, end: 20120629

REACTIONS (6)
  - Arthritis bacterial [None]
  - Staphylococcal bacteraemia [None]
  - Wound [None]
  - Wound secretion [None]
  - Anaemia [None]
  - Renal failure acute [None]
